FAERS Safety Report 20306302 (Version 3)
Quarter: 2022Q1

REPORT INFORMATION
  Report Type: Spontaneous
  Country: FR (occurrence: FR)
  Receive Date: 20220106
  Receipt Date: 20220209
  Transmission Date: 20220423
  Serious: Yes (Other)
  Sender: FDA-Public Use
  Company Number: FR-BoehringerIngelheim-2022-BI-146976

PATIENT
  Age: 85 Year
  Sex: Male
  Weight: 75 kg

DRUGS (8)
  1. CLONIDINE [Suspect]
     Active Substance: CLONIDINE
     Indication: Hypertension
     Dosage: 2 DF 1/1 DAY(S) (1-0-1)
     Route: 048
     Dates: start: 202108, end: 202108
  2. CLONIDINE [Suspect]
     Active Substance: CLONIDINE
     Dosage: 0.15
     Route: 048
     Dates: start: 20211213
  3. CLONIDINE [Suspect]
     Active Substance: CLONIDINE
     Dosage: 0.15 MG ONCE DAILY + 0.125 MG ONCE DAILY
     Route: 048
  4. LOPRESSOR [Concomitant]
     Active Substance: METOPROLOL TARTRATE
     Indication: Product used for unknown indication
     Dosage: ?-0-?
  5. CRESTOR [Concomitant]
     Active Substance: ROSUVASTATIN CALCIUM
     Indication: Product used for unknown indication
  6. BROMAZEPAM [Concomitant]
     Active Substance: BROMAZEPAM
     Indication: Product used for unknown indication
     Dosage: ?-?-?
  7. LERCANIDIPINE [Concomitant]
     Active Substance: LERCANIDIPINE
     Indication: Product used for unknown indication
  8. IRBESARTAN [Concomitant]
     Active Substance: IRBESARTAN
     Indication: Product used for unknown indication
     Route: 065

REACTIONS (6)
  - Nightmare [Recovered/Resolved]
  - Fall [Recovered/Resolved]
  - Facial pain [Recovered/Resolved]
  - Contusion [Recovered/Resolved]
  - Lip haemorrhage [Recovered/Resolved]
  - Musculoskeletal chest pain [Recovered/Resolved]

NARRATIVE: CASE EVENT DATE: 20211224
